FAERS Safety Report 26077230 (Version 1)
Quarter: 2025Q4

REPORT INFORMATION
  Report Type: Spontaneous
  Country: AU (occurrence: AU)
  Receive Date: 20251121
  Receipt Date: 20251121
  Transmission Date: 20260118
  Serious: Yes (Hospitalization)
  Sender: EISAI
  Company Number: AU-Eisai-EC-2025-200214

PATIENT
  Age: 62 Year
  Sex: Female

DRUGS (1)
  1. DAYVIGO [Suspect]
     Active Substance: LEMBOREXANT
     Indication: Insomnia
     Dosage: TOOK 5 MG TABLET BEFORE BEDTIME AND AN ADDITIONAL 5 MG TABLET AT 1 AM 5 HOURS POST THE FIRST DOSE
     Route: 048

REACTIONS (1)
  - Sleep paralysis [Recovered/Resolved]
